FAERS Safety Report 12706104 (Version 2)
Quarter: 2016Q3

REPORT INFORMATION
  Report Type: Spontaneous
  Country: US (occurrence: US)
  Receive Date: 20160901
  Receipt Date: 20160901
  Transmission Date: 20161109
  Serious: No
  Sender: FDA-Public Use
  Company Number: US-JAZZ-2016-US-007957

PATIENT
  Sex: Female

DRUGS (24)
  1. XYREM [Suspect]
     Active Substance: SODIUM OXYBATE
     Dosage: 3- 4.5 G, TWO -THREE TIMES PER NIGHT
     Route: 048
     Dates: start: 201511
  2. NORETHINDRONE. [Concomitant]
     Active Substance: NORETHINDRONE
  3. VITAMIN D [Concomitant]
     Active Substance: CHOLECALCIFEROL
  4. SINEMET [Concomitant]
     Active Substance: CARBIDOPA\LEVODOPA
  5. FLUTICASONE PROPRIONATE [Concomitant]
     Active Substance: FLUTICASONE PROPIONATE
  6. IRON [Concomitant]
     Active Substance: IRON
  7. ZYRTEC [Concomitant]
     Active Substance: CETIRIZINE HYDROCHLORIDE
  8. EFFEXOR [Concomitant]
     Active Substance: VENLAFAXINE HYDROCHLORIDE
  9. AZELASTINE [Concomitant]
     Active Substance: AZELASTINE
  10. APRI [Concomitant]
     Active Substance: DESOGESTREL\ETHINYL ESTRADIOL
  11. XYREM [Suspect]
     Active Substance: SODIUM OXYBATE
     Indication: CATAPLEXY
     Dosage: 4.5 G, BID
     Route: 048
     Dates: start: 201312, end: 201511
  12. ALLEGRA ALLERGY [Concomitant]
     Active Substance: FEXOFENADINE HYDROCHLORIDE
  13. LORATADINE. [Concomitant]
     Active Substance: LORATADINE
  14. XYREM [Suspect]
     Active Substance: SODIUM OXYBATE
     Indication: NARCOLEPSY
     Dosage: 2.25 G, BID
     Route: 048
     Dates: start: 201310, end: 201312
  15. SKYLA [Concomitant]
     Active Substance: LEVONORGESTREL
  16. FLOVENT HFA [Concomitant]
     Active Substance: FLUTICASONE PROPIONATE
  17. VENTOLIN HFA [Concomitant]
     Active Substance: ALBUTEROL SULFATE
  18. VITAMIN B12 [Concomitant]
     Active Substance: CYANOCOBALAMIN
  19. ST. JOHN^S WORT [Concomitant]
     Active Substance: ST. JOHN^S WORT
  20. GILDESS FE [Concomitant]
     Active Substance: ETHINYL ESTRADIOL\NORETHINDRONE
  21. RITALIN [Concomitant]
     Active Substance: METHYLPHENIDATE HYDROCHLORIDE
  22. HEMOCYTE [Concomitant]
  23. CONCERTA [Concomitant]
     Active Substance: METHYLPHENIDATE HYDROCHLORIDE
  24. IBUPROFEN. [Concomitant]
     Active Substance: IBUPROFEN

REACTIONS (1)
  - Feeling abnormal [Unknown]

NARRATIVE: CASE EVENT DATE: 2016
